FAERS Safety Report 5743628-9 (Version None)
Quarter: 2008Q2

REPORT INFORMATION
  Report Type: 
  Country: None (occurrence: None)
  Receive Date: 20080519
  Receipt Date: 20080519
  Transmission Date: 20081010
  Serious: Yes (Hospitalization)
  Sender: FDA-Public Use
  Company Number: None

PATIENT
  Age: 63 Year
  Sex: Male

DRUGS (1)
  1. GLYBURIDE [Suspect]
     Dosage: 10 MG BID PO
     Route: 048
     Dates: start: 20070312, end: 20080515

REACTIONS (2)
  - GAIT DISTURBANCE [None]
  - HYPOGLYCAEMIA [None]
